FAERS Safety Report 5680881-4 (Version None)
Quarter: 2008Q1

REPORT INFORMATION
  Report Type: 
  Country: None (occurrence: None)
  Receive Date: 20080326
  Receipt Date: 20080317
  Transmission Date: 20080703
  Serious: Yes (Hospitalization, Other)
  Sender: FDA-Public Use
  Company Number: US-PFIZER INC-2008024222

PATIENT
  Age: 56 Year
  Sex: Male

DRUGS (3)
  1. CELECOXIB [Suspect]
     Indication: OSTEOARTHRITIS
  2. CELECOXIB [Suspect]
     Indication: PAIN
  3. RAMIPRIL [Concomitant]
     Indication: HYPERTENSION
     Dosage: DAILY DOSE:10MG-FREQ:DAILY

REACTIONS (3)
  - DRUG TOXICITY [None]
  - HEPATOTOXICITY [None]
  - NEPHROPATHY TOXIC [None]
